FAERS Safety Report 5366962-3 (Version None)
Quarter: 2007Q2

REPORT INFORMATION
  Report Type: 
  Country: None (occurrence: None)
  Receive Date: 20070619
  Receipt Date: 20070611
  Transmission Date: 20071010
  Serious: Yes (Other)
  Sender: FDA-Public Use
  Company Number: TRP_0868_2006

PATIENT
  Age: 46 Year
  Sex: Female

DRUGS (7)
  1. RIBAVIRIN [Suspect]
     Indication: HEPATITIS C
     Dosage: (400 MG BID ORAL)
     Route: 048
     Dates: end: 20060716
  2. PEGASYS [Suspect]
     Indication: HEPATITIS C
     Dosage: (180 UG 1X/WEEK SUBCUTANEOUS)
     Route: 058
     Dates: end: 20060716
  3. RIBAVIRIN [Suspect]
     Indication: HEPATITIS C
     Dosage: (400 MG BID ORAL)
     Route: 048
     Dates: end: 20061224
  4. PEGASYS [Suspect]
     Indication: HEPATITIS C
     Dosage: (180 UG 1X/WEEK SUBCUTANEOUS)
     Route: 058
     Dates: end: 20061224
  5. LEXAPRO [Concomitant]
  6. PROCRIT [Concomitant]
  7. LEXAPRO [Concomitant]

REACTIONS (15)
  - ANAEMIA [None]
  - ANOREXIA [None]
  - ASTHENIA [None]
  - BACK PAIN [None]
  - DEHYDRATION [None]
  - FATIGUE [None]
  - GLOSSODYNIA [None]
  - HEADACHE [None]
  - MALAISE [None]
  - NAUSEA [None]
  - NEUTROPHIL COUNT DECREASED [None]
  - PAIN IN EXTREMITY [None]
  - RASH [None]
  - TONGUE HAEMORRHAGE [None]
  - WHITE BLOOD CELL COUNT DECREASED [None]
